FAERS Safety Report 13283937 (Version 1)
Quarter: 2017Q1

REPORT INFORMATION
  Report Type: Spontaneous
  Country: US (occurrence: US)
  Receive Date: 20170301
  Receipt Date: 20170301
  Transmission Date: 20170428
  Serious: No
  Sender: FDA-Public Use
  Company Number: US-PFIZER INC-2017083331

PATIENT
  Age: 6 Year
  Sex: Female

DRUGS (1)
  1. CORTISONE ACETATE. [Suspect]
     Active Substance: CORTISONE ACETATE
     Indication: DERMATITIS ATOPIC
     Dosage: UNK (ONCE OR TWICE A MONTH)

REACTIONS (2)
  - Drug effect incomplete [Unknown]
  - Dry skin [Unknown]
